FAERS Safety Report 4866338-9 (Version None)
Quarter: 2005Q4

REPORT INFORMATION
  Report Type: 
  Country: None (occurrence: None)
  Receive Date: 20051221
  Receipt Date: 20051209
  Transmission Date: 20060501
  Serious: Yes (Other)
  Sender: FDA-Public Use
  Company Number: 2005167994

PATIENT
  Age: 37 Year
  Sex: Female
  Weight: 151.955 kg

DRUGS (20)
  1. ZMAX [Suspect]
     Indication: SINUSITIS
     Dosage: (1 IN 1 TOTAL), ORAL
     Route: 048
     Dates: start: 20051203, end: 20051203
  2. ZITHROMAX [Suspect]
     Indication: SINUSITIS
     Dosage: 250 MG (250 MG, 1 IN 1 D),
     Dates: end: 20050701
  3. ZITHROMAX [Suspect]
     Indication: UPPER RESPIRATORY TRACT INFECTION
     Dosage: 250 MG (250 MG, 1 IN 1 D),
     Dates: end: 20050701
  4. DIFLUCAN [Suspect]
     Indication: FUNGAL INFECTION
     Dates: start: 20051205
  5. TOPAMAX [Concomitant]
  6. QVAR (BECLOMETASONE DIPROPIONATE) [Concomitant]
  7. ZYRTEC [Concomitant]
  8. PULMICORT [Concomitant]
  9. LAMICTAL [Concomitant]
  10. NORTRIPTYLINE (NORTRIPTYLINE) [Concomitant]
  11. NEXIUM [Concomitant]
  12. NASONEX [Concomitant]
  13. SALINE MIXTURE (AMMONIUM ACETATE, CAMPHOR WATER, SODIUM CITRATE, SODIU [Concomitant]
  14. MORPHINE SULFATE [Concomitant]
  15. PHENERGAN WITH CODEINE (CHLOROFORM, CITRIC ACID, CODEINE PHOSPHATE, IP [Concomitant]
  16. VERAPAMIL [Concomitant]
  17. ALL OTHER THERAPEUTIC PRODUCTS (ALL OTHER THERAPEUTIC PRODUCTS) [Concomitant]
  18. ALBUTEROL [Concomitant]
  19. XOPENEX [Concomitant]
  20. DEMADEX [Concomitant]

REACTIONS (8)
  - ABNORMAL BEHAVIOUR [None]
  - AMNESIA [None]
  - COUGH [None]
  - FUNGAL INFECTION [None]
  - HYPERSOMNIA [None]
  - NEPHROLITHIASIS [None]
  - PEAK EXPIRATORY FLOW RATE ABNORMAL [None]
  - TREATMENT NONCOMPLIANCE [None]
